FAERS Safety Report 4504412-7 (Version None)
Quarter: 2004Q4

REPORT INFORMATION
  Report Type: 
  Country: None (occurrence: None)
  Receive Date: 20041117
  Receipt Date: 20041117
  Transmission Date: 20050328
  Serious: Yes (Hospitalization)
  Sender: FDA-Public Use
  Company Number: None

PATIENT
  Age: 66 Year
  Sex: Male

DRUGS (9)
  1. NPH INSULIN [Suspect]
     Indication: DIABETES MELLITUS INSULIN-DEPENDENT
     Dosage: 42 UNITS QAM / 40 UNITS QPM
     Dates: start: 20010901
  2. ATENOLOL [Suspect]
     Indication: HYPERTENSION
     Dosage: 12.5MG QD
     Dates: start: 20031001
  3. BACLOFEN [Concomitant]
  4. FERROUS SULFATE TAB [Concomitant]
  5. FUROSEMIDE [Concomitant]
  6. NIFEDIPINE [Concomitant]
  7. OMEPRAZOLE [Concomitant]
  8. SIMVASTATIN [Concomitant]
  9. TERAZOSIN HCL [Concomitant]

REACTIONS (3)
  - BRADYCARDIA [None]
  - HYPOGLYCAEMIA [None]
  - SYNCOPE [None]
